FAERS Safety Report 25967923 (Version 1)
Quarter: 2025Q4

REPORT INFORMATION
  Report Type: Spontaneous
  Country: US (occurrence: US)
  Receive Date: 20251028
  Receipt Date: 20251028
  Transmission Date: 20260118
  Serious: No
  Sender: STALLERGENES
  Company Number: US-STALCOR-2025-AER-02549

PATIENT
  Age: 6 Year
  Sex: Female

DRUGS (1)
  1. PALFORZIA [Suspect]
     Active Substance: PEANUT
     Indication: Food allergy
     Dosage: REACTIVE DOSE (6MG) DURING THE IDE
     Route: 048
     Dates: start: 202506

REACTIONS (2)
  - Diarrhoea [Unknown]
  - Abdominal pain [Not Recovered/Not Resolved]

NARRATIVE: CASE EVENT DATE: 20250601
